FAERS Safety Report 4504297-9 (Version None)
Quarter: 2004Q4

REPORT INFORMATION
  Report Type: 
  Country: None (occurrence: None)
  Receive Date: 20041118
  Receipt Date: 20041112
  Transmission Date: 20050328
  Serious: Yes (Hospitalization)
  Sender: FDA-Public Use
  Company Number: US-AMGEN-US099570

PATIENT
  Sex: Female
  Weight: 108.1 kg

DRUGS (10)
  1. EPOGEN [Suspect]
     Indication: RENAL FAILURE CHRONIC
     Dates: start: 20030101
  2. LEVOTHROID [Concomitant]
  3. PLAVIX [Concomitant]
  4. LASIX [Concomitant]
  5. LEXAPRO [Concomitant]
  6. NORVASC [Concomitant]
  7. HYDROCHLOROTHIAZIDE [Concomitant]
  8. INSULIN [Concomitant]
  9. GEMFIBROZIL [Concomitant]
  10. TOPROL-XL [Concomitant]

REACTIONS (2)
  - FALL [None]
  - HAEMORRHAGE [None]
